FAERS Safety Report 9997091 (Version 1)
Quarter: 2014Q1

REPORT INFORMATION
  Report Type: Spontaneous
  Country: US (occurrence: US)
  Receive Date: 20140311
  Receipt Date: 20140311
  Transmission Date: 20141002
  Serious: No
  Sender: FDA-Public Use
  Company Number: US-GLAXOSMITHKLINE-A1016307A

PATIENT
  Age: 61 Year
  Sex: Male

DRUGS (2)
  1. NICORETTE WHITE ICE OTC 2MG [Suspect]
     Indication: EX-TOBACCO USER
     Dates: end: 20130315
  2. NICORETTE FRESHMINT 2MG [Suspect]
     Indication: EX-TOBACCO USER
     Dates: end: 20130315

REACTIONS (14)
  - Dizziness [Recovered/Resolved]
  - Malaise [Recovered/Resolved]
  - Disorientation [Recovered/Resolved]
  - Palpitations [Recovered/Resolved]
  - Eating disorder [Recovered/Resolved]
  - Heart rate increased [Not Recovered/Not Resolved]
  - Nausea [Recovered/Resolved]
  - Dry mouth [Recovered/Resolved]
  - Restlessness [Not Recovered/Not Resolved]
  - Abdominal discomfort [Recovered/Resolved]
  - Overdose [Recovered/Resolved]
  - Drug administration error [Unknown]
  - Drug ineffective [Unknown]
  - Therapeutic response unexpected [Not Recovered/Not Resolved]
